FAERS Safety Report 24232444 (Version 1)
Quarter: 2024Q3

REPORT INFORMATION
  Report Type: Spontaneous
  Country: US (occurrence: None)
  Receive Date: 20240820
  Receipt Date: 20240820
  Transmission Date: 20241017
  Serious: Yes (unspecified)
  Sender: Public
  Company Number: None

PATIENT
  Age: 92 Year
  Sex: Male
  Weight: 91.63 kg

DRUGS (1)
  1. ERLEADA [Suspect]
     Active Substance: APALUTAMIDE
     Indication: Prostate cancer
     Dosage: OTHER QUANTITY : 1 TABLET;?FREQUENCY : DAILY;?
     Route: 048
     Dates: start: 20240725, end: 20240806

REACTIONS (5)
  - Fall [None]
  - Balance disorder [None]
  - Blood pressure increased [None]
  - Fatigue [None]
  - Fatigue [None]

NARRATIVE: CASE EVENT DATE: 20240725
